FAERS Safety Report 7703313-0 (Version None)
Quarter: 2011Q3

REPORT INFORMATION
  Report Type: 
  Country: None (occurrence: None)
  Receive Date: 20110823
  Receipt Date: 20110811
  Transmission Date: 20111222
  Serious: Yes (Other)
  Sender: FDA-Public Use
  Company Number: GB-ELI_LILLY_AND_COMPANY-GB201108004018

PATIENT
  Age: 43 Year
  Sex: Female
  Weight: 149 kg

DRUGS (4)
  1. QUETIAPINE [Concomitant]
     Dosage: 250 MG, QD
     Dates: start: 20080828
  2. DULOXETIME HYDROCHLORIDE [Suspect]
     Indication: DEPRESSION
     Dosage: 60 MG, UNK
     Dates: start: 20080828
  3. TEMAZEPAM [Concomitant]
     Dosage: 20 MG, UNK
     Dates: start: 20080828
  4. LANSOPRAZOLE [Concomitant]
     Dosage: 15 MG, QD
     Dates: start: 20070606

REACTIONS (2)
  - OPTIC NEURITIS [None]
  - BLINDNESS [None]
